FAERS Safety Report 4447627-9 (Version None)
Quarter: 2004Q3

REPORT INFORMATION
  Report Type: 
  Country: None (occurrence: None)
  Receive Date: 20040823
  Receipt Date: 20040714
  Transmission Date: 20050211
  Serious: No
  Sender: FDA-Public Use
  Company Number: PHEH2004US07526

PATIENT
  Age: 57 Year
  Sex: Female

DRUGS (8)
  1. ZELNORM [Suspect]
     Indication: CONSTIPATION
     Dates: start: 20040618, end: 20040704
  2. ZELNORM [Suspect]
     Indication: CONSTIPATION
     Dates: start: 20040713
  3. ACIPHEX [Suspect]
     Indication: GASTROOESOPHAGEAL REFLUX DISEASE
     Dates: start: 20040618, end: 20040704
  4. NEURONTIN [Concomitant]
  5. XANAX [Concomitant]
  6. PREPHASE (ESTROGENS CONJUGATED) [Concomitant]
  7. TOPROL-XL [Concomitant]
  8. LAMOTRIGINE [Concomitant]

REACTIONS (5)
  - ABNORMAL SENSATION IN EYE [None]
  - MICTURITION URGENCY [None]
  - MUSCLE FATIGUE [None]
  - PAIN IN EXTREMITY [None]
  - POLLAKIURIA [None]
